FAERS Safety Report 6508918-0 (Version None)
Quarter: 2009Q4

REPORT INFORMATION
  Report Type: 
  Country: None (occurrence: None)
  Receive Date: 20091221
  Receipt Date: 20090917
  Transmission Date: 20100525
  Serious: No
  Sender: FDA-Public Use
  Company Number: US-ASTRAZENECA-2009SE13918

PATIENT
  Age: 68 Year
  Sex: Male
  Weight: 95.7 kg

DRUGS (1)
  1. CRESTOR [Suspect]
     Route: 048
     Dates: start: 20090819, end: 20090901

REACTIONS (1)
  - ANAPHYLACTIC REACTION [None]
